FAERS Safety Report 20707019 (Version 1)
Quarter: 2022Q2

REPORT INFORMATION
  Report Type: Spontaneous
  Country: PR (occurrence: PR)
  Receive Date: 20220413
  Receipt Date: 20220413
  Transmission Date: 20220721
  Serious: No
  Sender: FDA-Public Use
  Company Number: PR-PFIZER INC-2020416846

PATIENT
  Age: 10 Year
  Sex: Male
  Weight: 24.04 kg

DRUGS (2)
  1. GENOTROPIN [Suspect]
     Active Substance: SOMATROPIN
     Indication: Short stature
     Dosage: 1.0 MG, DAILY [1.0MG WITH THE PEN EVERY DAY AT NIGHT IN HIS THIGHS]
     Route: 030
     Dates: start: 202108
  2. GENOTROPIN [Suspect]
     Active Substance: SOMATROPIN
     Indication: Growth hormone deficiency

REACTIONS (4)
  - Needle issue [Unknown]
  - Device physical property issue [Unknown]
  - Device use issue [Unknown]
  - Injection site pain [Not Recovered/Not Resolved]

NARRATIVE: CASE EVENT DATE: 20210101
